FAERS Safety Report 7470814-2 (Version None)
Quarter: 2011Q2

REPORT INFORMATION
  Report Type: 
  Country: None (occurrence: None)
  Receive Date: 20110510
  Receipt Date: 20110426
  Transmission Date: 20111010
  Serious: Yes (Disabling)
  Sender: FDA-Public Use
  Company Number: JP-ABBOTT-11P-087-0713232-00

PATIENT
  Sex: Male
  Weight: 76 kg

DRUGS (9)
  1. MUCOSOLVAN [Concomitant]
     Indication: ATYPICAL MYCOBACTERIAL INFECTION
     Dosage: 45 MG DAILY
     Route: 048
     Dates: start: 20090512, end: 20101214
  2. RIFAMPICIN [Concomitant]
     Indication: ATYPICAL MYCOBACTERIAL INFECTION
     Dates: start: 20090512, end: 20101214
  3. MUCODYNE [Concomitant]
     Indication: ATYPICAL MYCOBACTERIAL INFECTION
     Dosage: 1500 MG DAILY
     Route: 048
     Dates: start: 20090512, end: 20101214
  4. ETHAMBUTOL HYDROCHLORIDE [Concomitant]
     Indication: ATYPICAL MYCOBACTERIAL INFECTION
     Dates: start: 20090512, end: 20101124
  5. APLACE [Concomitant]
     Indication: PROPHYLAXIS
     Dosage: 300 MG DAILY
     Route: 048
     Dates: start: 20090512, end: 20101214
  6. GASMOTIN [Concomitant]
     Indication: PROPHYLAXIS
     Dosage: 15 MG DAILY
     Route: 048
     Dates: start: 20100909, end: 20101214
  7. CLARITHROMYCIN [Suspect]
     Indication: ATYPICAL MYCOBACTERIAL INFECTION
     Route: 048
     Dates: start: 20090512, end: 20101215
  8. PYDOXAL [Concomitant]
     Indication: PROPHYLAXIS
     Dosage: 60 MG DAILY
     Route: 048
     Dates: start: 20090512, end: 20101214
  9. NAUZELIN [Concomitant]
     Indication: PROPHYLAXIS
     Dosage: 30 MG DAILY
     Route: 048
     Dates: start: 20090512, end: 20101214

REACTIONS (3)
  - NEPHROTIC SYNDROME [None]
  - HYPOALBUMINAEMIA [None]
  - OEDEMA PERIPHERAL [None]
